FAERS Safety Report 23226558 (Version 3)
Quarter: 2024Q1

REPORT INFORMATION
  Report Type: Spontaneous
  Country: DE (occurrence: DE)
  Receive Date: 20231124
  Receipt Date: 20240109
  Transmission Date: 20240410
  Serious: Yes (Hospitalization)
  Sender: FDA-Public Use
  Company Number: DE-DCGMA-22199891

PATIENT
  Age: 53 Year
  Sex: Male
  Weight: 115 kg

DRUGS (4)
  1. PEMETREXED [Suspect]
     Active Substance: PEMETREXED
     Indication: Bronchial carcinoma
     Dosage: 200 MG
     Route: 042
     Dates: start: 20220103, end: 20220308
  2. CARBOPLATIN [Suspect]
     Active Substance: CARBOPLATIN
     Indication: Bronchial carcinoma
     Dosage: 700 MG
     Route: 042
     Dates: start: 20220103, end: 20220308
  3. PEMBROLIZUMAB [Suspect]
     Active Substance: PEMBROLIZUMAB
     Indication: Bronchial carcinoma
     Dosage: 200 MG
     Route: 042
     Dates: start: 20220103, end: 20220308
  4. KEYTRUDA [Suspect]
     Active Substance: PEMBROLIZUMAB
     Indication: Neoplasm malignant
     Dosage: 200 MG
     Route: 042
     Dates: start: 20220103, end: 20220308

REACTIONS (3)
  - Oral candidiasis [Recovered/Resolved]
  - Oesophagitis [Recovered/Resolved]
  - Stomatitis [Recovered/Resolved]

NARRATIVE: CASE EVENT DATE: 20220318
